FAERS Safety Report 8302214-7 (Version None)
Quarter: 2012Q2

REPORT INFORMATION
  Report Type: 
  Country: None (occurrence: None)
  Receive Date: 20120420
  Receipt Date: 20120413
  Transmission Date: 20120825
  Serious: Yes (Hospitalization)
  Sender: FDA-Public Use
  Company Number: US-BAYER-2011-122137

PATIENT
  Age: 36 Year
  Sex: Female
  Weight: 104.31 kg

DRUGS (9)
  1. YAZ [Suspect]
     Indication: POLYCYSTIC OVARIES
     Dosage: UNK
     Route: 048
     Dates: start: 20060101, end: 20080101
  2. ORENCIA [Concomitant]
     Dosage: MONTHLY
     Route: 042
     Dates: start: 20080918
  3. FOLIC ACID [Concomitant]
     Dosage: 1 MG, UNK
     Dates: start: 20080827
  4. HYDROCODONE BITARTRATE [Concomitant]
     Dosage: 10/650 MG
     Route: 048
     Dates: start: 20080827
  5. DROSPIRENONE AND ETHINYL ESTRADIOL [Suspect]
     Indication: POLYCYSTIC OVARIES
     Dosage: UNK
     Dates: start: 20080101, end: 20110101
  6. LEVSINEX [Concomitant]
     Dosage: 0.375 DAILY AS NEEDED
     Route: 048
     Dates: start: 20080918
  7. METHOTREXATE [Concomitant]
     Dosage: 2.5 MG, UNK
     Route: 048
     Dates: start: 20080827
  8. GLUCOPHAGE [Concomitant]
     Dosage: 500 MG, DAILY
     Route: 048
     Dates: start: 20080918
  9. HYOSCYAMINE [Concomitant]
     Dosage: 0.375
     Route: 048
     Dates: start: 20080909

REACTIONS (8)
  - INJURY [None]
  - GALLBLADDER INJURY [None]
  - EMOTIONAL DISTRESS [None]
  - PAIN [None]
  - GENERAL PHYSICAL HEALTH DETERIORATION [None]
  - ANXIETY [None]
  - ANHEDONIA [None]
  - CHOLECYSTITIS CHRONIC [None]
